FAERS Safety Report 10742523 (Version 1)
Quarter: 2015Q1

REPORT INFORMATION
  Report Type: Report from Study
  Country: US (occurrence: US)
  Receive Date: 20150127
  Receipt Date: 20150127
  Transmission Date: 20150721
  Serious: No
  Sender: FDA-Public Use
  Company Number: US-AMGEN INC.-2014-1758

PATIENT
  Age: 55 Year
  Sex: Female

DRUGS (2)
  1. KYPROLIS [Suspect]
     Active Substance: CARFILZOMIB
     Indication: PLASMA CELL MYELOMA
     Route: 042
     Dates: start: 201401, end: 20140528
  2. KYPROLIS [Suspect]
     Active Substance: CARFILZOMIB
     Route: 042
     Dates: start: 20140807, end: 20140909

REACTIONS (11)
  - Malignant neoplasm progression [Unknown]
  - Urinary tract infection [Not Recovered/Not Resolved]
  - Nasopharyngitis [Unknown]
  - Blood potassium decreased [Unknown]
  - Platelet count decreased [Unknown]
  - Tooth fracture [Unknown]
  - Rib fracture [Unknown]
  - Dehydration [Unknown]
  - Periarthritis [Unknown]
  - Fatigue [Recovering/Resolving]
  - Blood calcium increased [Unknown]

NARRATIVE: CASE EVENT DATE: 2014
